FAERS Safety Report 8154704 (Version 4)
Quarter: 2013Q3

REPORT INFORMATION
  Report Type: Spontaneous
  Country: US (occurrence: US)
  Receive Date: 20110923
  Receipt Date: 20130827
  Transmission Date: 20140515
  Serious: Yes (Hospitalization)
  Sender: FDA-Public Use
  Company Number: US-GLAXOSMITHKLINE-B0706871A

PATIENT
  Age: 67 Year
  Sex: Female
  Weight: 92.3 kg

DRUGS (8)
  1. AVANDIA [Suspect]
     Indication: DIABETES MELLITUS
     Dosage: 8MG PER DAY
     Route: 048
     Dates: start: 20060303, end: 200709
  2. AVANDAMET [Suspect]
     Indication: DIABETES MELLITUS
     Route: 048
     Dates: start: 20051123, end: 20051223
  3. NEURONTIN [Concomitant]
  4. METFORMIN [Concomitant]
  5. LEVOXYL [Concomitant]
  6. LOPID [Concomitant]
  7. OMEPRAZOLE [Concomitant]
  8. LANOXIN [Concomitant]

REACTIONS (3)
  - Myocardial infarction [Unknown]
  - Coronary artery disease [Unknown]
  - Cardiac failure congestive [Unknown]
